FAERS Safety Report 5644322-5 (Version None)
Quarter: 2008Q1

REPORT INFORMATION
  Report Type: 
  Country: None (occurrence: None)
  Receive Date: 20080229
  Receipt Date: 20080220
  Transmission Date: 20080703
  Serious: Yes (Hospitalization)
  Sender: FDA-Public Use
  Company Number: PHHO2007FR20399

PATIENT
  Age: 66 Year
  Sex: Female
  Weight: 47 kg

DRUGS (2)
  1. IMATINIB MESYLATE [Suspect]
     Indication: GASTROINTESTINAL STROMAL TUMOUR
     Dosage: 400 MG, QD
     Route: 048
     Dates: start: 20070730, end: 20071127
  2. VOGALENE [Concomitant]

REACTIONS (5)
  - BLOOD PHOSPHORUS DECREASED [None]
  - DIARRHOEA [None]
  - GASTROENTERITIS [None]
  - STAPHYLOCOCCAL INFECTION [None]
  - VOMITING [None]
